FAERS Safety Report 6751657-1 (Version None)
Quarter: 2010Q2

REPORT INFORMATION
  Report Type: 
  Country: None (occurrence: None)
  Receive Date: 20100602
  Receipt Date: 20100525
  Transmission Date: 20101027
  Serious: Yes (Other)
  Sender: FDA-Public Use
  Company Number: A0861221A

PATIENT
  Age: 80 Year
  Sex: Male

DRUGS (3)
  1. CARVEDILOL [Suspect]
     Indication: BLOOD PRESSURE
     Dosage: 25MG TWICE PER DAY
     Route: 048
  2. LANOXIN [Suspect]
     Indication: DRUG USE FOR UNKNOWN INDICATION
  3. OTHER MEDICATIONS [Concomitant]

REACTIONS (5)
  - CARDIOACTIVE DRUG LEVEL INCREASED [None]
  - DRUG INEFFECTIVE [None]
  - DRUG INTERACTION [None]
  - PRODUCT SUBSTITUTION ISSUE [None]
  - WRONG TECHNIQUE IN DRUG USAGE PROCESS [None]
